FAERS Safety Report 25268284 (Version 1)
Quarter: 2025Q2

REPORT INFORMATION
  Report Type: Spontaneous
  Country: US (occurrence: None)
  Receive Date: 20250503
  Receipt Date: 20250503
  Transmission Date: 20250717
  Serious: No
  Sender: FDA-CTU
  Company Number: None

PATIENT
  Age: 3 Year
  Sex: Male
  Weight: 13.95 kg

DRUGS (2)
  1. NEUTROGENA BEACH DEFENSE SUNSCREEN [Suspect]
     Active Substance: AVOBENZONE\HOMOSALATE\OCTISALATE\OCTOCRYLENE
     Indication: Sunburn
     Dates: start: 20250503, end: 20250503
  2. NEUTROGENA BEACH DEFENSE SUNSCREEN [Suspect]
     Active Substance: AVOBENZONE\HOMOSALATE\OCTISALATE\OCTOCRYLENE
     Indication: Prophylaxis

REACTIONS (6)
  - Dermatitis contact [None]
  - Vomiting [None]
  - Chills [None]
  - Hypophagia [None]
  - Fatigue [None]
  - Heart rate increased [None]

NARRATIVE: CASE EVENT DATE: 20250503
